FAERS Safety Report 9439356 (Version 2)
Quarter: 2013Q3

REPORT INFORMATION
  Report Type: Spontaneous
  Country: AT (occurrence: AT)
  Receive Date: 20130805
  Receipt Date: 20130826
  Transmission Date: 20140515
  Serious: No
  Sender: FDA-Public Use
  Company Number: AT-ROCHE-1256737

PATIENT
  Age: 51 Year
  Sex: Female
  Weight: 75 kg

DRUGS (2)
  1. XOLAIR [Suspect]
     Indication: ASTHMA
     Route: 065
  2. SERETIDE [Concomitant]

REACTIONS (2)
  - Weight increased [Not Recovered/Not Resolved]
  - Local swelling [Recovered/Resolved]
